FAERS Safety Report 9251759 (Version 6)
Quarter: 2014Q1

REPORT INFORMATION
  Report Type: Spontaneous
  Country: US (occurrence: US)
  Receive Date: 20130424
  Receipt Date: 20140218
  Transmission Date: 20141002
  Serious: Yes (Hospitalization, Disabling, Other)
  Sender: FDA-Public Use
  Company Number: US-ASTRAZENECA-2013SE27310

PATIENT
  Age: 63 Year
  Sex: Female
  Weight: 65.8 kg

DRUGS (24)
  1. NEXIUM [Suspect]
     Indication: GASTROOESOPHAGEAL REFLUX DISEASE
     Dosage: TWO TIMES PER DAY
     Route: 048
  2. NEXIUM [Suspect]
     Indication: DYSPEPSIA
     Dosage: TWO TIMES PER DAY
     Route: 048
  3. NEXIUM [Suspect]
     Indication: GASTRIC DISORDER
     Dosage: TWO TIMES PER DAY
     Route: 048
  4. NEXIUM [Suspect]
     Indication: GASTROOESOPHAGEAL REFLUX DISEASE
     Route: 048
     Dates: start: 20050114
  5. NEXIUM [Suspect]
     Indication: DYSPEPSIA
     Route: 048
     Dates: start: 20050114
  6. NEXIUM [Suspect]
     Indication: GASTRIC DISORDER
     Route: 048
     Dates: start: 20050114
  7. NEXIUM [Suspect]
     Indication: GASTROOESOPHAGEAL REFLUX DISEASE
     Route: 048
     Dates: start: 20030512
  8. NEXIUM [Suspect]
     Indication: DYSPEPSIA
     Route: 048
     Dates: start: 20030512
  9. NEXIUM [Suspect]
     Indication: GASTRIC DISORDER
     Route: 048
     Dates: start: 20030512
  10. TAGAMET [Concomitant]
     Dosage: ONE BOTTLER FIVE YEARS AGO
  11. TUMS [Concomitant]
  12. ROLAIDS [Concomitant]
  13. PREMARIN [Concomitant]
     Indication: HORMONE REPLACEMENT THERAPY
  14. PREMARIN [Concomitant]
     Indication: HORMONE REPLACEMENT THERAPY
     Dates: start: 20050114
  15. TRIAMETRENE/HCTZ [Concomitant]
     Dosage: 15/50 HALF QD
  16. COREG [Concomitant]
     Indication: HYPERTENSION
     Route: 048
     Dates: start: 20130304
  17. HYZAAR [Concomitant]
     Dosage: 50-12.5 MG
     Route: 048
     Dates: start: 20130304
  18. LEVOXYL [Concomitant]
     Route: 048
     Dates: start: 20130304
  19. LEVAQUIN [Concomitant]
  20. MICARDIS [Concomitant]
  21. PREDNISONE [Concomitant]
     Dates: start: 20040131
  22. SINGULAIR [Concomitant]
     Dates: start: 20040131
  23. ESTRATEST [Concomitant]
     Dates: start: 20021015
  24. POTASSIUM CHLORIDE [Concomitant]
     Dates: start: 20031121

REACTIONS (23)
  - Spinal fracture [Unknown]
  - Spinal compression fracture [Unknown]
  - Mobility decreased [Unknown]
  - Foot fracture [Unknown]
  - Back pain [Unknown]
  - Musculoskeletal pain [Unknown]
  - Upper limb fracture [Unknown]
  - Bone disorder [Unknown]
  - Radiculopathy [Unknown]
  - Osteoporosis [Unknown]
  - Multiple fractures [Unknown]
  - Arthritis [Unknown]
  - Bone pain [Unknown]
  - Cataract [Unknown]
  - Hand fracture [Unknown]
  - Intervertebral disc degeneration [Unknown]
  - Road traffic accident [Unknown]
  - Osteoarthritis [Unknown]
  - Fall [Unknown]
  - Spinal osteoarthritis [Unknown]
  - Bursitis [Unknown]
  - Intervertebral disc disorder [Unknown]
  - Intervertebral disc protrusion [Unknown]
